FAERS Safety Report 17390291 (Version 1)
Quarter: 2020Q1

REPORT INFORMATION
  Report Type: Report from Study
  Country: CA (occurrence: CA)
  Receive Date: 20200207
  Receipt Date: 20200207
  Transmission Date: 20200409
  Serious: Yes (Life-Threatening)
  Sender: FDA-Public Use
  Company Number: CA-REGENERON PHARMACEUTICALS, INC.-2020-18065

PATIENT

DRUGS (2)
  1. CEMIPLIMAB [Suspect]
     Active Substance: CEMIPLIMAB
     Indication: SQUAMOUS CELL CARCINOMA OF SKIN
     Dosage: UNK UNK, QCY
     Route: 042
     Dates: start: 20190604, end: 20190604
  2. CEMIPLIMAB [Suspect]
     Active Substance: CEMIPLIMAB
     Dosage: UNK, QCY
     Route: 042
     Dates: start: 20200120, end: 20200120

REACTIONS (1)
  - Transient ischaemic attack [Recovering/Resolving]

NARRATIVE: CASE EVENT DATE: 20200127
